FAERS Safety Report 9383661 (Version 2)
Quarter: 2013Q4

REPORT INFORMATION
  Report Type: Spontaneous
  Country: GB (occurrence: GB)
  Receive Date: 20130704
  Receipt Date: 20131108
  Transmission Date: 20140711
  Serious: Yes (Hospitalization, Other)
  Sender: FDA-Public Use
  Company Number: GB-ASTRAZENECA-2013SE49517

PATIENT
  Age: 48 Year
  Sex: Male

DRUGS (21)
  1. QUETIAPINE [Suspect]
     Indication: BIPOLAR DISORDER
     Route: 048
     Dates: start: 20130522
  2. QUETIAPINE [Suspect]
     Indication: BIPOLAR DISORDER
     Route: 048
     Dates: end: 20130614
  3. QUETIAPINE [Suspect]
     Indication: BIPOLAR DISORDER
     Route: 048
     Dates: end: 20130616
  4. ANGITIL XL [Concomitant]
  5. ASPIRIN [Concomitant]
  6. ATORVASTATIN [Concomitant]
  7. CHLORHEXIDINE [Concomitant]
  8. FLUTICASONE [Concomitant]
     Route: 055
  9. GABAPENTIN [Concomitant]
  10. IBUPROFEN [Concomitant]
  11. LAMOTRIGINE [Concomitant]
  12. MOMETASONE [Concomitant]
  13. MONTELUKAST [Concomitant]
  14. NYSTATIN [Concomitant]
  15. OMEPRAZOLE [Concomitant]
  16. PREGABALIN [Concomitant]
  17. SALBUTAMOL [Concomitant]
     Route: 055
  18. SALMETEROL [Concomitant]
     Route: 055
  19. TOLTERODINE [Concomitant]
  20. TRAMADOL [Concomitant]
  21. ZOPICLONE [Concomitant]

REACTIONS (7)
  - Facial paresis [Recovering/Resolving]
  - Muscular weakness [Recovering/Resolving]
  - Vertigo [Unknown]
  - Dysarthria [Recovering/Resolving]
  - Vision blurred [Unknown]
  - Dysarthria [Unknown]
  - Dizziness [Unknown]
